FAERS Safety Report 6659920-X (Version None)
Quarter: 2010Q1

REPORT INFORMATION
  Report Type: 
  Country: None (occurrence: None)
  Receive Date: 20100326
  Receipt Date: 20100315
  Transmission Date: 20100710
  Serious: Yes (Hospitalization, Disabling)
  Sender: FDA-Public Use
  Company Number: 2010PV000007

PATIENT
  Age: 53 Year
  Sex: Female

DRUGS (1)
  1. DEPOCYT [Suspect]
     Indication: HIGH GRADE B-CELL LYMPHOMA BURKITT-LIKE LYMPHOMA
     Dosage: 50 MG; QM; INTH
     Route: 037
     Dates: start: 20080116, end: 20080408

REACTIONS (2)
  - CAUDA EQUINA SYNDROME [None]
  - NEUROTOXICITY [None]
